FAERS Safety Report 12489258 (Version 2)
Quarter: 2016Q3

REPORT INFORMATION
  Report Type: Spontaneous
  Country: US (occurrence: US)
  Receive Date: 20160622
  Receipt Date: 20160802
  Transmission Date: 20161109
  Serious: Yes (Life-Threatening, Hospitalization, Other)
  Sender: FDA-Public Use
  Company Number: US-ALLERGAN-1660298US

PATIENT
  Age: 8 Week
  Sex: Female
  Weight: 3.15 kg

DRUGS (9)
  1. PROPRANOLOL HCL 10MG TAB [Concomitant]
     Indication: ULCERATED HAEMANGIOMA
     Dosage: 4 MG/KG, QD
     Route: 048
  2. PREDNISOLONE ACETATE, 1.0% [Concomitant]
     Active Substance: PREDNISOLONE ACETATE
     Indication: ULCERATED HAEMANGIOMA
     Dosage: 2 MG/KG, QD
     Route: 048
  3. PREDNISOLONE ACETATE, 1.0% [Concomitant]
     Active Substance: PREDNISOLONE ACETATE
     Dosage: 1 MG/KG, QD
     Route: 048
  4. BRIMONIDINE [Suspect]
     Active Substance: BRIMONIDINE TARTRATE
     Indication: ULCERATED HAEMANGIOMA
     Dosage: 2 GTT, FOUR HOURS LATER APPLIED IN THE SAME AMOUNT
     Route: 061
  5. LIDOCAINE. [Concomitant]
     Active Substance: LIDOCAINE
     Indication: ULCERATED HAEMANGIOMA
     Dosage: UNK, UNK
     Route: 061
  6. OXYCODONE [Concomitant]
     Active Substance: OXYCODONE
     Indication: ULCERATED HAEMANGIOMA
     Dosage: .05 MG/KG, UNK
     Route: 048
  7. TIMOLOL MALEATE. [Suspect]
     Active Substance: TIMOLOL MALEATE
     Indication: ULCERATED HAEMANGIOMA
     Dosage: 2 GTT, FOUR HOURS LATER APPLIED IN THE SAME AMOUNT
     Route: 061
  8. PROPRANOLOL HCL 10MG TAB [Concomitant]
     Dosage: 1 MG/KG, QD
  9. PROPRANOLOL HCL 10MG TAB [Concomitant]
     Dosage: 3 MG/KG, QD

REACTIONS (8)
  - Depressed level of consciousness [Recovered/Resolved]
  - Infantile apnoea [Unknown]
  - Lethargy [Recovered/Resolved]
  - Toxicity to various agents [Recovered/Resolved]
  - Hypotonia [Recovered/Resolved]
  - Hypothermia [Recovered/Resolved]
  - Off label use [Unknown]
  - Respiratory depression [Recovered/Resolved]
